FAERS Safety Report 4389919-8 (Version None)
Quarter: 2004Q2

REPORT INFORMATION
  Report Type: 
  Country: None (occurrence: None)
  Receive Date: 20040630
  Receipt Date: 20040618
  Transmission Date: 20050107
  Serious: No
  Sender: FDA-Public Use
  Company Number: 2004AP03206

PATIENT
  Age: 72 Year
  Sex: Male

DRUGS (1)
  1. CASODEX [Suspect]
     Indication: PROSTATE CANCER
     Dosage: 80 MG DAILY PO
     Route: 048
     Dates: start: 20040501

REACTIONS (2)
  - BLOOD PRESSURE DECREASED [None]
  - HOT FLUSH [None]
